FAERS Safety Report 19458605 (Version 1)
Quarter: 2021Q2

REPORT INFORMATION
  Report Type: Spontaneous
  Country: US (occurrence: US)
  Receive Date: 20210624
  Receipt Date: 20210624
  Transmission Date: 20210717
  Serious: Yes (Hospitalization, Other)
  Sender: FDA-Public Use
  Company Number: US-PFIZER INC-2021684788

PATIENT
  Age: 65 Year
  Sex: Female
  Weight: 68.04 kg

DRUGS (7)
  1. PREDNISONE. [Concomitant]
     Active Substance: PREDNISONE
     Dosage: UNK
     Dates: start: 20210525
  2. PREDNISONE. [Concomitant]
     Active Substance: PREDNISONE
     Dosage: 30MG FOR 7DAYS
  3. VFEND [Suspect]
     Active Substance: VORICONAZOLE
     Indication: BRONCHOPULMONARY ASPERGILLOSIS ALLERGIC
     Dosage: 200 MG, 2X/DAY
     Route: 048
     Dates: start: 202101, end: 202103
  4. PREDNISONE. [Concomitant]
     Active Substance: PREDNISONE
     Dosage: 60 MG (FOR 4 DAYS)
     Dates: start: 202101
  5. PREDNISONE. [Concomitant]
     Active Substance: PREDNISONE
     Dosage: 10MG FOR 7DAYS
  6. PREDNISONE. [Concomitant]
     Active Substance: PREDNISONE
     Dosage: 40MG FOR 7DAYS
  7. PREDNISONE. [Concomitant]
     Active Substance: PREDNISONE
     Dosage: 20MG FOR 7DAYS

REACTIONS (4)
  - Oxygen saturation decreased [Unknown]
  - Dyspnoea [Unknown]
  - Cough [Unknown]
  - Wheezing [Unknown]

NARRATIVE: CASE EVENT DATE: 202105
